FAERS Safety Report 9189227 (Version 1)
Quarter: 2013Q1

REPORT INFORMATION
  Report Type: Spontaneous
  Country: US (occurrence: None)
  Receive Date: 20120628
  Receipt Date: 20120628
  Transmission Date: 20140127
  Serious: Yes (Other)
  Sender: FDA-Public Use
  Company Number: ALL1-2012-01469

PATIENT
  Age: 8 Year
  Sex: Male

DRUGS (1)
  1. INTUNIV [Suspect]
     Indication: ATTENTION DEFICIT/HYPERACTIVITY DISORDER
     Dosage: 1MG 4 DAYS A WEEK BY MOM ORAL
     Dates: end: 2012

REACTIONS (3)
  - Loss of consciousness [None]
  - Hepatic enzyme increased [None]
  - Incorrect dose administered [None]
